FAERS Safety Report 13077287 (Version 4)
Quarter: 2017Q1

REPORT INFORMATION
  Report Type: Spontaneous
  Country: DZ (occurrence: DZ)
  Receive Date: 20161230
  Receipt Date: 20170120
  Transmission Date: 20170428
  Serious: Yes (Other)
  Sender: FDA-Public Use
  Company Number: DZ-EMD SERONO-8132629

PATIENT
  Age: 29 Year
  Sex: Female

DRUGS (1)
  1. GONAL-F [Suspect]
     Active Substance: FOLLITROPIN
     Indication: POLYCYSTIC OVARIES
     Route: 058
     Dates: start: 20161211, end: 20161219

REACTIONS (3)
  - Uterine haemorrhage [Recovered/Resolved]
  - Uterine prolapse [Recovered/Resolved]
  - Ovulation disorder [Recovered/Resolved]
